FAERS Safety Report 8379657-9 (Version None)
Quarter: 2012Q2

REPORT INFORMATION
  Report Type: 
  Country: None (occurrence: None)
  Receive Date: 20120523
  Receipt Date: 20120517
  Transmission Date: 20120825
  Serious: Yes (Hospitalization, Other)
  Sender: FDA-Public Use
  Company Number: US-ASTRAZENECA-2012SE32274

PATIENT
  Age: 47 Year
  Sex: Male
  Weight: 99.8 kg

DRUGS (6)
  1. SEROQUEL XR [Suspect]
     Dosage: 25  MG IN THE MORNING AND 25 MG IN THE NIGHT
     Route: 048
  2. SEROQUEL XR [Suspect]
     Dosage: 100  MG IN THE MORNING AND 100 MG IN THE NIGHT
     Route: 048
  3. SEROQUEL XR [Suspect]
     Indication: BIPOLAR I DISORDER
     Route: 048
  4. SEROQUEL XR [Suspect]
     Route: 048
  5. SEROQUEL XR [Suspect]
     Dosage: 50  MG IN THE MORNING AND 50 MG IN THE NIGHT
     Route: 048
  6. SEROQUEL XR [Suspect]
     Route: 048

REACTIONS (17)
  - THINKING ABNORMAL [None]
  - DRUG DOSE OMISSION [None]
  - DIABETES MELLITUS [None]
  - HAEMORRHAGE INTRACRANIAL [None]
  - SUICIDAL IDEATION [None]
  - EYE INJURY [None]
  - ARTHRALGIA [None]
  - COGNITIVE DISORDER [None]
  - ALCOHOL PROBLEM [None]
  - HAEMORRHAGE [None]
  - CONVULSION [None]
  - AFFECTIVE DISORDER [None]
  - IRRITABILITY [None]
  - INTENTIONAL DRUG MISUSE [None]
  - ABDOMINAL DISCOMFORT [None]
  - AMNESIA [None]
  - WEIGHT INCREASED [None]
